FAERS Safety Report 18820350 (Version 1)
Quarter: 2021Q1

REPORT INFORMATION
  Report Type: Spontaneous
  Country: US (occurrence: US)
  Receive Date: 20210201
  Receipt Date: 20210201
  Transmission Date: 20210419
  Serious: Yes (Other)
  Sender: FDA-Public Use
  Company Number: None

PATIENT
  Age: 55 Year
  Sex: Female
  Weight: 93 kg

DRUGS (1)
  1. FERAHEME [Suspect]
     Active Substance: FERUMOXYTOL NON-STOICHIOMETRIC MAGNETITE
     Indication: IRON DEFICIENCY ANAEMIA
     Dosage: ?          OTHER FREQUENCY:ONCE;?
     Route: 042
     Dates: start: 20191205, end: 20191205

REACTIONS (3)
  - Infusion related reaction [None]
  - Throat tightness [None]
  - Pruritus [None]

NARRATIVE: CASE EVENT DATE: 20191205
